FAERS Safety Report 9879418 (Version 1)
Quarter: 2014Q1

REPORT INFORMATION
  Report Type: Spontaneous
  Country: FR (occurrence: FR)
  Receive Date: 20140206
  Receipt Date: 20140206
  Transmission Date: 20141002
  Serious: Yes (Death, Life-Threatening)
  Sender: FDA-Public Use
  Company Number: FR-BRISTOL-MYERS SQUIBB COMPANY-20134847

PATIENT
  Age: 62 Year
  Sex: Male

DRUGS (7)
  1. GLUCOPHAGE TABS 1000 MG [Suspect]
     Indication: TYPE 2 DIABETES MELLITUS
     Route: 048
  2. KARDEGIC [Concomitant]
  3. CARDENSIEL [Concomitant]
  4. TAHOR [Concomitant]
  5. COVERSYL [Concomitant]
  6. LANTUS [Concomitant]
  7. LASILIX [Concomitant]

REACTIONS (6)
  - Multi-organ failure [Fatal]
  - Lactic acidosis [Unknown]
  - Cardiac arrest [Unknown]
  - Acute respiratory distress syndrome [Unknown]
  - Septic shock [Unknown]
  - Acute pulmonary oedema [Unknown]
